FAERS Safety Report 9885968 (Version 1)
Quarter: 2014Q1

REPORT INFORMATION
  Report Type: Spontaneous
  Country: US (occurrence: US)
  Receive Date: 20140210
  Receipt Date: 20140210
  Transmission Date: 20141002
  Serious: Yes (Other)
  Sender: FDA-Public Use
  Company Number: US-009507513-1402USA001939

PATIENT
  Age: 18 Year
  Sex: Female

DRUGS (1)
  1. NEXPLANON [Suspect]
     Dosage: 1 IMPLANT/ 3 YEARS
     Route: 059
     Dates: start: 20140116, end: 20140130

REACTIONS (2)
  - Convulsion [Recovered/Resolved]
  - Headache [Not Recovered/Not Resolved]
